FAERS Safety Report 23271309 (Version 2)
Quarter: 2024Q1

REPORT INFORMATION
  Report Type: Spontaneous
  Country: SI (occurrence: SI)
  Receive Date: 20231207
  Receipt Date: 20240102
  Transmission Date: 20240410
  Serious: Yes (Other)
  Sender: FDA-Public Use
  Company Number: SI-BAYER-2023A174663

PATIENT
  Age: 2 Year
  Sex: Male
  Weight: 4.73 kg

DRUGS (4)
  1. VITRAKVI [Suspect]
     Active Substance: LAROTRECTINIB
     Indication: Congenital fibrosarcoma
     Dosage: UNK
  2. VINCRISTINE [Concomitant]
     Active Substance: VINCRISTINE
     Dosage: 230 MG
     Route: 042
     Dates: start: 20180917
  3. VINCRISTINE [Concomitant]
     Active Substance: VINCRISTINE
     Dosage: 230 ?G
     Route: 040
     Dates: start: 20180924
  4. DACTINOMYCIN [Concomitant]
     Active Substance: DACTINOMYCIN
     Dosage: 230 MG
     Route: 042

REACTIONS (17)
  - Enterocolitis [Recovered/Resolved]
  - Neutropenia [Recovering/Resolving]
  - Reticulocyte percentage increased [None]
  - Platelet count increased [None]
  - Reticulocyte count increased [None]
  - Neutrophil count decreased [None]
  - Dermatitis [Recovered/Resolved]
  - Hypotonia [Recovered/Resolved]
  - Red blood cell count decreased [None]
  - Haemoglobin decreased [None]
  - Weight gain poor [Recovering/Resolving]
  - Haematocrit decreased [None]
  - Mean platelet volume increased [None]
  - Monocyte count increased [None]
  - Eosinophil count increased [None]
  - Lymphocyte count increased [None]
  - Monocyte count decreased [None]

NARRATIVE: CASE EVENT DATE: 20190401
